FAERS Safety Report 13318759 (Version 1)
Quarter: 2017Q1

REPORT INFORMATION
  Report Type: Spontaneous
  Country: US (occurrence: US)
  Receive Date: 20170310
  Receipt Date: 20170310
  Transmission Date: 20170428
  Serious: No
  Sender: FDA-Public Use
  Company Number: US-009507513-1703USA004135

PATIENT
  Age: 51 Year
  Sex: Female

DRUGS (9)
  1. DEXAMETHASONE. [Suspect]
     Active Substance: DEXAMETHASONE
     Dosage: UNK, AS A PART OF MELPHALAN-BORTEZOMIB-DEXAMETHASONE COMBINATION CHEMOTHERAPY
     Route: 048
  2. BORTEZOMIB [Suspect]
     Active Substance: BORTEZOMIB
     Dosage: UNK, AS A PART OF MELPHALAN-BORTEZOMIB-DEXAMETHASONE COMBINATION CHEMOTHERAPY
  3. METOPROLOL. [Concomitant]
     Active Substance: METOPROLOL
     Dosage: UNK
  4. CYCLOPHOSPHAMIDE. [Suspect]
     Active Substance: CYCLOPHOSPHAMIDE
     Indication: PRIMARY AMYLOIDOSIS
     Dosage: UNK, AS A PART OF CYCLOPHOSPHAMIDE-BORTEZOMIB-DEXAMETHASONE (CYBORD) COMBINATION CHEMOTHERAPY
  5. BORTEZOMIB [Suspect]
     Active Substance: BORTEZOMIB
     Indication: PRIMARY AMYLOIDOSIS
     Dosage: UNK, AS A PART OF CYCLOPHOSPHAMIDE-BORTEZOMIB-DEXAMETHASONE (CYBORD) COMBINATION CHEMOTHERAPY
  6. DEXAMETHASONE. [Suspect]
     Active Substance: DEXAMETHASONE
     Indication: PRIMARY AMYLOIDOSIS
     Dosage: UNK, AS A PART OF CYCLOPHOSPHAMIDE-BORTEZOMIB-DEXAMETHASONE (CYBORD) COMBINATION CHEMOTHERAPY
     Route: 048
  7. VITAMINS (UNSPECIFIED) [Concomitant]
     Active Substance: VITAMINS
  8. VITAMIN D [Concomitant]
     Active Substance: CHOLECALCIFEROL
     Dosage: UNK
  9. IRON (UNSPECIFIED) [Concomitant]
     Active Substance: IRON
     Dosage: UNK

REACTIONS (1)
  - Drug ineffective [Unknown]
